FAERS Safety Report 20534775 (Version 2)
Quarter: 2022Q1

REPORT INFORMATION
  Report Type: Report from Study
  Country: CA (occurrence: CA)
  Receive Date: 20220302
  Receipt Date: 20220328
  Transmission Date: 20220424
  Serious: Yes (Disabling)
  Sender: FDA-Public Use
  Company Number: CA-JNJFOC-20210847896

PATIENT
  Age: 12 Year
  Sex: Female
  Weight: 88 kg

DRUGS (2)
  1. REMICADE [Suspect]
     Active Substance: INFLIXIMAB
     Indication: Crohn^s disease
     Dosage: THERAPY START DATE ALSO REPORTED ON 14/NOV/2020
     Route: 042
     Dates: start: 20201031
  2. REMICADE [Suspect]
     Active Substance: INFLIXIMAB
     Dosage: LESS THAN 5MG/KG
     Route: 042
     Dates: start: 20220224

REACTIONS (13)
  - Pyoderma gangrenosum [Not Recovered/Not Resolved]
  - Impaired quality of life [Unknown]
  - Blister [Unknown]
  - Skin exfoliation [Unknown]
  - Dry skin [Not Recovered/Not Resolved]
  - Pruritus [Not Recovered/Not Resolved]
  - Rash vesicular [Not Recovered/Not Resolved]
  - Skin reaction [Unknown]
  - Impaired healing [Not Recovered/Not Resolved]
  - Hypersomnia [Unknown]
  - Fatigue [Unknown]
  - Off label use [Unknown]
  - Incorrect dose administered [Unknown]

NARRATIVE: CASE EVENT DATE: 20210101
